FAERS Safety Report 5815453-1 (Version None)
Quarter: 2008Q3

REPORT INFORMATION
  Report Type: 
  Country: None (occurrence: None)
  Receive Date: 20080718
  Receipt Date: 20080708
  Transmission Date: 20090109
  Serious: Yes (Disabling, Other)
  Sender: FDA-Public Use
  Company Number: CA-PFIZER INC-2008056547

PATIENT
  Sex: Male

DRUGS (11)
  1. CHANTIX [Suspect]
     Indication: EX-TOBACCO USER
     Route: 048
  2. LAMOTRIGINE [Concomitant]
     Route: 048
  3. BUPROPION HYDROCHLORIDE [Concomitant]
     Route: 048
  4. AMITRIPTYLINE HCL [Concomitant]
     Route: 048
  5. CLONAZEPAM [Concomitant]
     Route: 048
  6. SPIRIVA [Concomitant]
     Route: 048
  7. GABAPENTIN [Concomitant]
     Route: 048
  8. RAMIPRIL [Concomitant]
     Route: 048
  9. SYMBICORT [Concomitant]
     Route: 048
  10. ATIVAN [Concomitant]
     Route: 048
  11. LAMISIL [Concomitant]
     Route: 048

REACTIONS (2)
  - NARCOLEPSY [None]
  - SLEEP APNOEA SYNDROME [None]
